FAERS Safety Report 8970723 (Version 1)
Quarter: 2012Q4

REPORT INFORMATION
  Report Type: 
  Country: US (occurrence: US)
  Receive Date: 20121218
  Receipt Date: 20121218
  Transmission Date: 20130627
  Serious: No
  Sender: FDA-Public Use
  Company Number: US-BRISTOL-MYERS SQUIBB COMPANY-16517088

PATIENT
  Age: 12 Year
  Sex: Female
  Weight: 57.59 kg

DRUGS (4)
  1. ABILIFY [Suspect]
     Indication: ANXIETY
     Route: 048
     Dates: start: 20110823
  2. ABILIFY [Suspect]
     Indication: OBSESSIVE-COMPULSIVE DISORDER
     Route: 048
     Dates: start: 20110823
  3. ZOLOFT [Suspect]
     Indication: OBSESSIVE-COMPULSIVE DISORDER
  4. ZOLOFT [Suspect]
     Indication: ANXIETY

REACTIONS (4)
  - Amenorrhoea [Unknown]
  - Blood prolactin increased [Unknown]
  - Weight increased [Unknown]
  - Blood immunoglobulin A decreased [Unknown]
